FAERS Safety Report 5409590-3 (Version None)
Quarter: 2007Q3

REPORT INFORMATION
  Report Type: 
  Country: None (occurrence: None)
  Receive Date: 20070809
  Receipt Date: 20070731
  Transmission Date: 20080115
  Serious: No
  Sender: FDA-Public Use
  Company Number: DE-BAXTER-2007BH006727

PATIENT
  Age: 14 Month

DRUGS (1)
  1. RECOMBINANT FACTOR VIII, UNSPECIFIED [Suspect]
     Indication: FACTOR VIII DEFICIENCY
     Dosage: DOSE UNIT:UNKNOWN
     Route: 065

REACTIONS (2)
  - AUTOIMMUNE NEUTROPENIA [None]
  - FACTOR VIII INHIBITION [None]
